FAERS Safety Report 6887472-8 (Version None)
Quarter: 2010Q3

REPORT INFORMATION
  Report Type: 
  Country: None (occurrence: None)
  Receive Date: 20100730
  Receipt Date: 20100720
  Transmission Date: 20110219
  Serious: Yes (Other)
  Sender: FDA-Public Use
  Company Number: US-PFIZER INC-2010031933

PATIENT
  Sex: Female
  Weight: 99.773 kg

DRUGS (4)
  1. LYRICA [Suspect]
     Indication: FIBROMYALGIA
     Dosage: 600 MG, 2X/DAY
     Dates: start: 20070101
  2. ZANAFLEX [Concomitant]
     Indication: MUSCLE SPASMS
     Dosage: 4 MG, UNK
  3. AMBIEN [Concomitant]
     Dosage: 10 MG, UNK
  4. LORTAB [Concomitant]
     Indication: PAIN
     Dosage: 10 MG, UNK

REACTIONS (2)
  - PAIN [None]
  - WITHDRAWAL SYNDROME [None]
